FAERS Safety Report 8564897-6 (Version None)
Quarter: 2012Q3

REPORT INFORMATION
  Report Type: 
  Country: None (occurrence: None)
  Receive Date: 20120803
  Receipt Date: 20120726
  Transmission Date: 20120928
  Serious: Yes (Other)
  Sender: FDA-Public Use
  Company Number: US-MYLANLABS-2012S1012279

PATIENT
  Age: 69 Year
  Sex: Female

DRUGS (6)
  1. NADOLOL [Suspect]
     Indication: BLOOD PRESSURE INCREASED
     Route: 048
     Dates: start: 20120701
  2. CARVEDILOL [Suspect]
     Indication: BLOOD PRESSURE INCREASED
     Route: 048
     Dates: start: 20120501, end: 20120630
  3. DIOVAN [Suspect]
     Route: 048
     Dates: start: 20120701
  4. DIOVAN [Suspect]
     Indication: BLOOD PRESSURE INCREASED
     Route: 048
     Dates: start: 20120517, end: 20120701
  5. AMBIEN [Concomitant]
     Indication: INSOMNIA
     Route: 048
  6. CARVEDILOL [Suspect]
     Indication: HEART RATE INCREASED
     Route: 048
     Dates: start: 20120501, end: 20120630

REACTIONS (13)
  - PALPITATIONS [None]
  - SKIN EXFOLIATION [None]
  - VERTIGO [None]
  - SOMNOLENCE [None]
  - ERYTHEMA [None]
  - HYPERTENSION [None]
  - SKIN DISCOMFORT [None]
  - DRUG EFFECT DECREASED [None]
  - MYALGIA [None]
  - DIZZINESS [None]
  - ANXIETY [None]
  - GASTRITIS [None]
  - PAIN IN EXTREMITY [None]
